FAERS Safety Report 16848337 (Version 1)
Quarter: 2019Q3

REPORT INFORMATION
  Report Type: Other
  Country: DE (occurrence: DE)
  Receive Date: 20190925
  Receipt Date: 20190925
  Transmission Date: 20191005
  Serious: Yes (Congenital Anomaly, Other)
  Sender: FDA-Public Use
  Company Number: DE-LUPIN PHARMACEUTICALS INC.-2019-06105

PATIENT
  Age: 1 Day
  Sex: Female
  Weight: 3.52 kg

DRUGS (10)
  1. LAMOTRIGINE. [Suspect]
     Active Substance: LAMOTRIGINE
     Dosage: UNK, 800 [MG/D (BIS 775 MG/D)]
     Route: 064
     Dates: end: 20180219
  2. RISPERIDON HEXAL [Suspect]
     Active Substance: RISPERIDONE
     Indication: DEPRESSION
     Dosage: 1 MILLIGRAM, QD, UNTIL GW 5
     Route: 064
  3. RISPERIDON HEXAL [Suspect]
     Active Substance: RISPERIDONE
     Dosage: 1 MILLIGRAM, BID, FROM GW 31
     Route: 064
  4. PIPAMPERONE [Suspect]
     Active Substance: PIPAMPERONE
     Indication: DEPRESSION
     Dosage: 10 MILLIGRAM, QD, 10 (MG/D)/ UNTIL GW 5 AND AGAIN IN THE THIRD TRIMESTER UNTIL DELIVERY
     Route: 064
  5. FOLSAEURE [Concomitant]
     Active Substance: FOLIC ACID
     Indication: PROPHYLAXIS OF NEURAL TUBE DEFECT
     Dosage: UNK
     Route: 064
     Dates: start: 20170512, end: 20180219
  6. HALDOL [Concomitant]
     Active Substance: HALOPERIDOL
     Indication: DEPRESSION
     Dosage: UNK
     Route: 064
  7. TAVOR (LORAZEPAM) [Concomitant]
     Active Substance: LORAZEPAM
     Indication: DEPRESSION
     Dosage: 0.5 MILLIGRAM, BID, OCCASIONALLY, IF NECESSARY
     Route: 064
  8. LAMOTRIGINE. [Suspect]
     Active Substance: LAMOTRIGINE
     Indication: EPILEPSY
     Dosage: 775 MILLIGRAM, QD
     Route: 064
     Dates: start: 20170512
  9. VENLAFAXINE [Concomitant]
     Active Substance: VENLAFAXINE HYDROCHLORIDE
     Indication: DEPRESSION
     Dosage: 150 MILLIGRAM, QD
     Route: 064
  10. CITALOPRAM [Suspect]
     Active Substance: CITALOPRAM HYDROBROMIDE
     Indication: DEPRESSION
     Dosage: 20 (MG/D)/ UNTIL GW 5 AND THEN AGAIN FROM GW 31.
     Route: 064

REACTIONS (7)
  - Respiratory disorder neonatal [Recovered/Resolved]
  - Ventricular septal defect [Not Recovered/Not Resolved]
  - Congenital coronary artery malformation [Not Recovered/Not Resolved]
  - Atrial septal defect [Not Recovered/Not Resolved]
  - Foetal exposure during pregnancy [Unknown]
  - Agitation neonatal [Recovered/Resolved]
  - Patent ductus arteriosus [Recovered/Resolved]

NARRATIVE: CASE EVENT DATE: 20180219
